FAERS Safety Report 4578426-5 (Version None)
Quarter: 2005Q1

REPORT INFORMATION
  Report Type: 
  Country: None (occurrence: None)
  Receive Date: 20050209
  Receipt Date: 20050128
  Transmission Date: 20050727
  Serious: Yes (Hospitalization, Other)
  Sender: FDA-Public Use
  Company Number: 2005003966

PATIENT
  Age: 58 Year
  Sex: Female
  Weight: 36.2878 kg

DRUGS (2)
  1. TIKOSYN [Suspect]
     Indication: ATRIAL FLUTTER
     Dosage: 500 MCG (250 MCG, IN 2 IN  1 D), ORAL
     Route: 048
     Dates: start: 20040101
  2. WARFARIN SODIUM [Concomitant]

REACTIONS (7)
  - ATRIAL FLUTTER [None]
  - BLOOD GASES ABNORMAL [None]
  - BLOOD UREA INCREASED [None]
  - CHRONIC OBSTRUCTIVE AIRWAYS DISEASE EXACERBATED [None]
  - CONDUCTION DISORDER [None]
  - DYSPHAGIA [None]
  - PLATELET COUNT DECREASED [None]
